FAERS Safety Report 10222330 (Version 1)
Quarter: 2014Q2

REPORT INFORMATION
  Report Type: Spontaneous
  Country: CN (occurrence: CN)
  Receive Date: 20140606
  Receipt Date: 20140606
  Transmission Date: 20141212
  Serious: Yes (Hospitalization, Other)
  Sender: FDA-Public Use
  Company Number: CN-PFIZER INC-2014154643

PATIENT
  Age: 61 Year
  Sex: Male

DRUGS (3)
  1. SOLU-MEDROL [Suspect]
     Indication: DRUG THERAPY
     Dosage: 120 MG, 1X/DAY
     Route: 041
     Dates: start: 20121012, end: 20121015
  2. DIPRIVAN [Suspect]
     Indication: DRUG THERAPY
     Dosage: 1000 MG, 1X/DAY
     Route: 041
     Dates: start: 20121013, end: 20121013
  3. MIDAZOLAM [Suspect]
     Indication: DRUG THERAPY
     Dosage: 25 MG, 1X/DAY
     Route: 041
     Dates: start: 20121013, end: 20121013

REACTIONS (2)
  - Ventricular arrhythmia [Recovering/Resolving]
  - Heart rate decreased [Recovered/Resolved]
